FAERS Safety Report 21012102 (Version 1)
Quarter: 2022Q3

REPORT INFORMATION
  Report Type: Report from Study
  Country: HN (occurrence: HN)
  Receive Date: 20220627
  Receipt Date: 20220627
  Transmission Date: 20221027
  Serious: Yes (Disabling, Other)
  Sender: FDA-Public Use
  Company Number: HN-NOVARTISPH-NVSC2022HN145744

PATIENT
  Age: 76 Year
  Sex: Male

DRUGS (2)
  1. EXFORGE HCT [Suspect]
     Active Substance: AMLODIPINE BESYLATE\HYDROCHLOROTHIAZIDE\VALSARTAN
     Indication: Product used for unknown indication
     Dosage: 10/320/25 MG
     Route: 065
  2. HYDROCHLOROTHIAZIDE\VALSARTAN [Concomitant]
     Active Substance: HYDROCHLOROTHIAZIDE\VALSARTAN
     Indication: Product used for unknown indication
     Dosage: 320/25 MG
     Route: 065

REACTIONS (4)
  - Cerebrovascular accident [Unknown]
  - Gait disturbance [Unknown]
  - Hypokinesia [Unknown]
  - Fluid retention [Unknown]
